FAERS Safety Report 7507633-4 (Version None)
Quarter: 2011Q2

REPORT INFORMATION
  Report Type: 
  Country: None (occurrence: None)
  Receive Date: 20110527
  Receipt Date: 20110517
  Transmission Date: 20111010
  Serious: Yes (Life-Threatening, Hospitalization, Other)
  Sender: FDA-Public Use
  Company Number: AU-PAR PHARMACEUTICAL, INC-2011SCPR003002

PATIENT

DRUGS (1)
  1. IBUPROFEN [Suspect]
     Indication: BACK PAIN
     Dosage: 1.4-2.0 G/DAY
     Route: 048

REACTIONS (2)
  - RENAL TUBULAR ACIDOSIS [None]
  - HYPOKALAEMIA [None]
